FAERS Safety Report 7328835 (Version 4)
Quarter: 2021Q2

REPORT INFORMATION
  Report Type: Report from Study
  Country: AU (occurrence: AU)
  Receive Date: 20100323
  Receipt Date: 20210517
  Transmission Date: 20210717
  Serious: Yes (Other)
  Sender: FDA-Public Use
  Company Number: AU-PFIZER INC-2010035850

PATIENT
  Age: 75 Year
  Sex: Male

DRUGS (6)
  1. MORPHINE SULFATE. [Suspect]
     Active Substance: MORPHINE SULFATE
     Indication: ANALGESIC THERAPY
     Dosage: 240 MG, DAILY
     Route: 042
  2. METHADONE [Interacting]
     Active Substance: METHADONE HYDROCHLORIDE
     Indication: ANALGESIC THERAPY
     Dosage: UNK
  3. PARACETAMOL [Interacting]
     Active Substance: ACETAMINOPHEN
     Indication: ANALGESIC THERAPY
     Dosage: UNK
  4. PIROXICAM. [Interacting]
     Active Substance: PIROXICAM
     Dosage: UNK
  5. DEXAMETHASONE. [Interacting]
     Active Substance: DEXAMETHASONE
     Dosage: UNK
  6. THIETHYLPERAZINE [Interacting]
     Active Substance: THIETHYLPERAZINE
     Indication: NAUSEA

REACTIONS (2)
  - Myoclonus [Unknown]
  - Drug interaction [Unknown]
